FAERS Safety Report 4728168-8 (Version None)
Quarter: 2005Q3

REPORT INFORMATION
  Report Type: 
  Country: None (occurrence: None)
  Receive Date: 20050728
  Receipt Date: 20050728
  Transmission Date: 20060218
  Serious: Yes (Death, Hospitalization)
  Sender: FDA-Public Use
  Company Number: None

PATIENT
  Sex: Male
  Weight: 65.4 kg

DRUGS (3)
  1. PACLITAXEL [Suspect]
     Indication: NON-SMALL CELL LUNG CANCER
     Dosage: SEE IMAGE
     Route: 042
     Dates: start: 20050713, end: 20050713
  2. CARBOPLATIN [Suspect]
     Dosage: SEE IMAGE
     Route: 042
     Dates: start: 20050713, end: 20050713
  3. RADIATION [Suspect]
     Dosage: SEE IMAGE
     Dates: start: 20050713

REACTIONS (3)
  - HAEMOPTYSIS [None]
  - HYPOXIA [None]
  - RESPIRATORY FAILURE [None]
